FAERS Safety Report 4313920-3 (Version None)
Quarter: 2004Q1

REPORT INFORMATION
  Report Type: 
  Country: None (occurrence: None)
  Receive Date: 20040305
  Receipt Date: 20040225
  Transmission Date: 20041129
  Serious: Yes (Hospitalization)
  Sender: FDA-Public Use
  Company Number: 2003CG01832

PATIENT
  Age: 56 Year
  Sex: Female
  Weight: 124 kg

DRUGS (7)
  1. NEXIUM [Suspect]
     Indication: GASTROINTESTINAL HAEMORRHAGE
     Dosage: 40 MG QD PO
     Route: 048
     Dates: start: 20030823, end: 20030826
  2. MOPRAL [Suspect]
     Indication: GASTROINTESTINAL HAEMORRHAGE
     Dosage: 40 MG QD IV
     Route: 042
     Dates: start: 20030820, end: 20030823
  3. INIPOMP [Suspect]
     Indication: GASTROINTESTINAL HAEMORRHAGE
     Dosage: 20 MG QD PO
     Route: 048
     Dates: start: 20030826, end: 20030828
  4. AVLOCARDYL [Concomitant]
  5. IMOVANE [Concomitant]
  6. VITAMIN B1 AND B6 [Concomitant]
  7. SANDOSTATIN [Concomitant]

REACTIONS (3)
  - ANAEMIA [None]
  - PANCYTOPENIA [None]
  - STAPHYLOCOCCAL SEPSIS [None]
